FAERS Safety Report 9161074 (Version 1)
Quarter: 2013Q1

REPORT INFORMATION
  Report Type: Spontaneous
  Country: US (occurrence: US)
  Receive Date: 20130313
  Receipt Date: 20130313
  Transmission Date: 20140127
  Serious: Yes (Other)
  Sender: FDA-Public Use
  Company Number: US-PFIZER INC-2013082061

PATIENT
  Age: 20 Year
  Sex: Female
  Weight: 58.96 kg

DRUGS (8)
  1. LYRICA [Suspect]
     Indication: MIGRAINE
     Dosage: 225 MG, 1X/DAY
     Route: 048
     Dates: start: 201212
  2. CLONAZEPAM [Concomitant]
     Indication: ANXIETY
     Dosage: UNK, 2X/DAY
  3. PROPRANOLOL [Concomitant]
     Dosage: 20 MG, 2X/DAY
  4. TRAZODONE [Concomitant]
     Dosage: 100 MG, 1X/DAY
  5. SERTRALINE [Concomitant]
     Dosage: 100 MG, 1X/DAY
  6. MAGNESIUM OXIDE [Concomitant]
     Dosage: 100 MG, 2X/DAY
  7. LIBRAX [Concomitant]
     Dosage: UNK
  8. BUSPAR [Concomitant]
     Indication: ANXIETY
     Dosage: UNK

REACTIONS (5)
  - Extrasystoles [Not Recovered/Not Resolved]
  - Chest pain [Not Recovered/Not Resolved]
  - Weight increased [Not Recovered/Not Resolved]
  - Intentional drug misuse [Unknown]
  - Off label use [Unknown]
